FAERS Safety Report 21979284 (Version 5)
Quarter: 2023Q2

REPORT INFORMATION
  Report Type: Spontaneous
  Country: BR (occurrence: BR)
  Receive Date: 20230210
  Receipt Date: 20230518
  Transmission Date: 20230721
  Serious: Yes (Other)
  Sender: FDA-Public Use
  Company Number: BR-KOREA IPSEN Pharma-2023-02381

PATIENT
  Age: 39 Year
  Sex: Female
  Weight: 65 kg

DRUGS (1)
  1. DYSPORT [Suspect]
     Active Substance: ABOBOTULINUMTOXINA
     Indication: Skin wrinkling
     Dates: start: 20221111

REACTIONS (9)
  - Swelling face [Recovered/Resolved]
  - Rash pustular [Recovered/Resolved]
  - Skin mass [Unknown]
  - Head deformity [Unknown]
  - Pain of skin [Unknown]
  - Sensitive skin [Unknown]
  - Therapeutic product effect incomplete [Unknown]
  - Product use in unapproved indication [Unknown]
  - Product counterfeit [Unknown]

NARRATIVE: CASE EVENT DATE: 20221111
